FAERS Safety Report 17829880 (Version 1)
Quarter: 2020Q2

REPORT INFORMATION
  Report Type: Spontaneous
  Country: US (occurrence: US)
  Receive Date: 20200527
  Receipt Date: 20200527
  Transmission Date: 20200714
  Serious: No
  Sender: FDA-Public Use
  Company Number: US-B.I. PHARMACEUTICALS,INC./RIDGEFIELD-2020-US-026198

PATIENT
  Sex: Female

DRUGS (6)
  1. METFORMIN [Concomitant]
     Active Substance: METFORMIN HYDROCHLORIDE
     Indication: TYPE 2 DIABETES MELLITUS
     Dosage: 500MG TABLET, 2 TABLETS BID
     Route: 065
  2. GLYXAMBI [Suspect]
     Active Substance: EMPAGLIFLOZIN\LINAGLIPTIN
     Indication: TYPE 2 DIABETES MELLITUS
     Dosage: NR
     Route: 065
     Dates: start: 201901, end: 2019
  3. GLYXAMBI [Suspect]
     Active Substance: EMPAGLIFLOZIN\LINAGLIPTIN
     Dosage: 10MG/5MG QD
     Route: 065
     Dates: start: 202005
  4. PIOGLITAZONE. [Concomitant]
     Active Substance: PIOGLITAZONE
     Indication: TYPE 2 DIABETES MELLITUS
     Dosage: 30MG QD
     Route: 065
  5. GLIPIZIDE. [Concomitant]
     Active Substance: GLIPIZIDE
     Indication: TYPE 2 DIABETES MELLITUS
     Dosage: 10MG QD
     Route: 065
  6. ACETAMINOPHEN. [Concomitant]
     Active Substance: ACETAMINOPHEN
     Indication: ARTHRITIS
     Route: 065

REACTIONS (1)
  - Drug ineffective [Unknown]

NARRATIVE: CASE EVENT DATE: 2019
